FAERS Safety Report 18566067 (Version 90)
Quarter: 2025Q3

REPORT INFORMATION
  Report Type: Report from Study
  Country: US (occurrence: US)
  Receive Date: 20201201
  Receipt Date: 20250827
  Transmission Date: 20251021
  Serious: Yes (Hospitalization, Other)
  Sender: TAKEDA
  Company Number: US-TAKEDA-US201942841

PATIENT
  Sex: Female
  Weight: 54 kg

DRUGS (60)
  1. HUMAN IMMUNOGLOBULIN G [Suspect]
     Active Substance: HUMAN IMMUNOGLOBULIN G
     Indication: Primary immunodeficiency syndrome
     Dosage: 12 GRAM, 1/WEEK
     Dates: start: 20180420
  2. HUMAN IMMUNOGLOBULIN G [Suspect]
     Active Substance: HUMAN IMMUNOGLOBULIN G
     Indication: Immunodeficiency common variable
     Dosage: 15 GRAM, 1/WEEK
     Dates: start: 20180629
  3. HUMAN IMMUNOGLOBULIN G [Suspect]
     Active Substance: HUMAN IMMUNOGLOBULIN G
     Dosage: 12 GRAM, Q2WEEKS
  4. HUMAN IMMUNOGLOBULIN G [Suspect]
     Active Substance: HUMAN IMMUNOGLOBULIN G
     Dosage: 16 GRAM, 1/WEEK
  5. HUMAN IMMUNOGLOBULIN G [Suspect]
     Active Substance: HUMAN IMMUNOGLOBULIN G
  6. HUMAN IMMUNOGLOBULIN G [Suspect]
     Active Substance: HUMAN IMMUNOGLOBULIN G
  7. HUMAN IMMUNOGLOBULIN G [Suspect]
     Active Substance: HUMAN IMMUNOGLOBULIN G
  8. HUMAN IMMUNOGLOBULIN G [Suspect]
     Active Substance: HUMAN IMMUNOGLOBULIN G
  9. HUMAN IMMUNOGLOBULIN G [Suspect]
     Active Substance: HUMAN IMMUNOGLOBULIN G
     Dosage: 17 GRAM, 1/WEEK
  10. HUMAN IMMUNOGLOBULIN G [Suspect]
     Active Substance: HUMAN IMMUNOGLOBULIN G
     Dosage: 17 GRAM, 1/WEEK
  11. HUMAN IMMUNOGLOBULIN G [Suspect]
     Active Substance: HUMAN IMMUNOGLOBULIN G
     Dosage: 17 GRAM, 1/WEEK
  12. HUMAN IMMUNOGLOBULIN G [Suspect]
     Active Substance: HUMAN IMMUNOGLOBULIN G
     Dosage: 17 GRAM, 1/WEEK
  13. ASPIRIN [Suspect]
     Active Substance: ASPIRIN
     Indication: Product used for unknown indication
  14. GAMUNEX-C [Suspect]
     Active Substance: HUMAN IMMUNOGLOBULIN G
     Indication: Product used for unknown indication
  15. MYOBLOC [Suspect]
     Active Substance: RIMABOTULINUMTOXINB
     Indication: Product used for unknown indication
  16. LYRICA [Suspect]
     Active Substance: PREGABALIN
     Indication: Product used for unknown indication
  17. NORTRIPTYLINE [Suspect]
     Active Substance: NORTRIPTYLINE
     Indication: Product used for unknown indication
  18. LISINOPRIL [Suspect]
     Active Substance: LISINOPRIL
     Indication: Product used for unknown indication
  19. ACETAMINOPHEN [Concomitant]
     Active Substance: ACETAMINOPHEN
  20. VOLTAREN ARTHRITIS PAIN [Concomitant]
     Active Substance: DICLOFENAC SODIUM
  21. ITRACONAZOLE [Concomitant]
     Active Substance: ITRACONAZOLE
     Dosage: 100 MILLIGRAM, BID
  22. FIORICET [Concomitant]
     Active Substance: ACETAMINOPHEN\BUTALBITAL\CAFFEINE
  23. AUGMENTIN [Concomitant]
     Active Substance: AMOXICILLIN\CLAVULANATE POTASSIUM
  24. AZELASTINE HYDROCHLORIDE [Concomitant]
     Active Substance: AZELASTINE HYDROCHLORIDE
  25. ATENOLOL [Concomitant]
     Active Substance: ATENOLOL
  26. BACLOFEN [Concomitant]
     Active Substance: BACLOFEN
  27. GABAPENTIN [Concomitant]
     Active Substance: GABAPENTIN
  28. SYNTHROID [Concomitant]
     Active Substance: LEVOTHYROXINE SODIUM
  29. CLOTRIMAZOLE [Concomitant]
     Active Substance: CLOTRIMAZOLE
  30. CALCITONIN SALMON [Concomitant]
     Active Substance: CALCITONIN SALMON
  31. LIDOCAINE [Concomitant]
     Active Substance: LIDOCAINE
  32. BENZOYL PEROXIDE\CLINDAMYCIN PHOSPHATE [Concomitant]
     Active Substance: BENZOYL PEROXIDE\CLINDAMYCIN PHOSPHATE
  33. ZIRGAN [Concomitant]
     Active Substance: GANCICLOVIR
  34. EPINEPHRINE [Concomitant]
     Active Substance: EPINEPHRINE
  35. CHLORTHALIDONE [Concomitant]
     Active Substance: CHLORTHALIDONE
  36. FISH OIL [Concomitant]
     Active Substance: FISH OIL
  37. CALCIUM\VITAMIN D [Concomitant]
     Active Substance: CALCIUM\VITAMIN D
  38. DURAGESIC [Concomitant]
     Active Substance: FENTANYL
  39. COLCRYS [Concomitant]
     Active Substance: COLCHICINE
  40. DEXAMETHASONE\NEOMYCIN\POLYMYXIN B [Concomitant]
     Active Substance: DEXAMETHASONE\NEOMYCIN\POLYMYXIN B
  41. FEXOFENADINE HYDROCHLORIDE [Concomitant]
     Active Substance: FEXOFENADINE HYDROCHLORIDE
  42. TYLENOL EXTRA STRENGTH [Concomitant]
     Active Substance: ACETAMINOPHEN
  43. HYDROGEN PEROXIDE [Concomitant]
     Active Substance: HYDROGEN PEROXIDE
  44. PROPRANOLOL HYDROCHLORIDE [Concomitant]
     Active Substance: PROPRANOLOL HYDROCHLORIDE
  45. BIOTENE NOS [Concomitant]
     Active Substance: UNSPECIFIED INGREDIENT
  46. FLUDROCORTISONE ACETATE [Concomitant]
     Active Substance: FLUDROCORTISONE ACETATE
  47. SODIUM CHLORIDE [Concomitant]
     Active Substance: SODIUM CHLORIDE
  48. CALCIUM\VITAMIN D [Concomitant]
     Active Substance: CALCIUM\VITAMIN D
  49. OXYCODONE HYDROCHLORIDE [Concomitant]
     Active Substance: OXYCODONE HYDROCHLORIDE
  50. CETIRIZINE HYDROCHLORIDE [Concomitant]
     Active Substance: CETIRIZINE HYDROCHLORIDE
  51. NYSTATIN [Concomitant]
     Active Substance: NYSTATIN
  52. MYRBETRIQ [Concomitant]
     Active Substance: MIRABEGRON
  53. KETOCONAZOLE [Concomitant]
     Active Substance: KETOCONAZOLE
  54. LEVOTHYROXINE [Concomitant]
     Active Substance: LEVOTHYROXINE
  55. BACLOFEN [Concomitant]
     Active Substance: BACLOFEN
  56. LANSOPRAZOLE [Concomitant]
     Active Substance: LANSOPRAZOLE
  57. QUERCETIN [Concomitant]
     Active Substance: QUERCETIN
  58. Turkey tail [Concomitant]
  59. Hair/skin nails [Concomitant]
  60. FENTANYL [Concomitant]
     Active Substance: FENTANYL
     Dosage: UNK UNK, Q72H

REACTIONS (98)
  - Partial seizures [Unknown]
  - Skin infection [Unknown]
  - Macular degeneration [Unknown]
  - Papilloedema [Unknown]
  - Cataract [Unknown]
  - Brain oedema [Unknown]
  - Brain injury [Unknown]
  - Dystonia [Unknown]
  - Craniocerebral injury [Unknown]
  - Urinary retention [Unknown]
  - Loss of consciousness [Unknown]
  - Syncope [Unknown]
  - Fatigue [Unknown]
  - Herpes ophthalmic [Unknown]
  - Oral candidiasis [Unknown]
  - Neuropathy peripheral [Unknown]
  - Migraine [Not Recovered/Not Resolved]
  - Bronchitis [Recovered/Resolved]
  - Infusion site discharge [Unknown]
  - Wrong technique in product usage process [Unknown]
  - Product dose omission issue [Unknown]
  - Incorrect dose administered [Unknown]
  - Oropharyngeal pain [Unknown]
  - Malaise [Unknown]
  - Infusion site swelling [Unknown]
  - Diarrhoea [Recovered/Resolved]
  - Headache [Unknown]
  - Dermatitis contact [Unknown]
  - Infusion related reaction [Unknown]
  - Stress [Unknown]
  - Poor quality sleep [Unknown]
  - Limb injury [Unknown]
  - Seasonal allergy [Unknown]
  - Gastroenteritis viral [Unknown]
  - Pain in jaw [Unknown]
  - Pulse absent [Unknown]
  - Eye disorder [Unknown]
  - Oropharyngeal candidiasis [Unknown]
  - Arterial disorder [Unknown]
  - Blepharospasm [Unknown]
  - Weight decreased [Unknown]
  - Illness [Unknown]
  - Infection [Unknown]
  - Impaired quality of life [Unknown]
  - Multiple allergies [Unknown]
  - Ophthalmic migraine [Unknown]
  - Blood immunoglobulin G decreased [Unknown]
  - Respiratory tract infection [Unknown]
  - Post-acute COVID-19 syndrome [Unknown]
  - Rectal spasm [Unknown]
  - Allergy to arthropod bite [Unknown]
  - Feeding disorder [Unknown]
  - Immune system disorder [Unknown]
  - Peripheral swelling [Unknown]
  - Head injury [Unknown]
  - Allergy to arthropod bite [Unknown]
  - Drug hypersensitivity [Unknown]
  - Food allergy [Unknown]
  - Hypoaesthesia [Unknown]
  - Visual impairment [Unknown]
  - Blood pressure fluctuation [Unknown]
  - Influenza [Unknown]
  - Contusion [Unknown]
  - Insomnia [Unknown]
  - Balance disorder [Unknown]
  - Blood pressure increased [Recovering/Resolving]
  - Muscle spasms [Unknown]
  - Asthenia [Unknown]
  - Pain [Unknown]
  - Hypertension [Unknown]
  - Vomiting [Unknown]
  - Infusion site pain [Unknown]
  - Pyrexia [Unknown]
  - Arthralgia [Unknown]
  - Dizziness [Unknown]
  - Nausea [Unknown]
  - Fall [Unknown]
  - Candida infection [Unknown]
  - COVID-19 [Not Recovered/Not Resolved]
  - Procedural pain [Unknown]
  - Eye infection [Unknown]
  - Dermatitis allergic [Unknown]
  - Food allergy [Unknown]
  - Abdominal rigidity [Unknown]
  - Incorrect product administration duration [Unknown]
  - Device infusion issue [Unknown]
  - Laryngitis [Not Recovered/Not Resolved]
  - Blood pressure decreased [Unknown]
  - Abdominal discomfort [Unknown]
  - Burning sensation [Unknown]
  - Chest pain [Unknown]
  - Influenza like illness [Unknown]
  - Abdominal pain upper [Unknown]
  - Back pain [Unknown]
  - Arthropod sting [Unknown]
  - Allergy to arthropod sting [Unknown]
  - Exposure to toxic agent [Unknown]
  - Infusion site haemorrhage [Unknown]

NARRATIVE: CASE EVENT DATE: 20220101
